FAERS Safety Report 9321582 (Version 1)
Quarter: 2013Q2

REPORT INFORMATION
  Report Type: Spontaneous
  Country: US (occurrence: US)
  Receive Date: 20130531
  Receipt Date: 20130531
  Transmission Date: 20140414
  Serious: Yes (Hospitalization)
  Sender: FDA-Public Use
  Company Number: US-ELI_LILLY_AND_COMPANY-US201207008371

PATIENT
  Age: 81 Year
  Sex: Female

DRUGS (5)
  1. FORTEO [Suspect]
     Indication: OSTEOPOROSIS
     Dosage: 20 UG, QD
     Route: 058
     Dates: start: 2012
  2. FORTEO [Suspect]
     Dosage: 20 UG, 4/W
     Route: 058
  3. FORTEO [Suspect]
     Dosage: 20 UG, QD
     Route: 058
     Dates: start: 20130417
  4. FORTEO [Suspect]
     Dosage: 20 UG, QD
     Route: 058
  5. DILANTIN [Concomitant]

REACTIONS (6)
  - Ligament sprain [Unknown]
  - Drug level increased [Unknown]
  - Fatigue [Unknown]
  - Paraesthesia [Unknown]
  - Injection site pain [Unknown]
  - Blood calcium increased [Unknown]
